FAERS Safety Report 9419170 (Version 3)
Quarter: 2013Q4

REPORT INFORMATION
  Report Type: Report from Study
  Country: JP (occurrence: JP)
  Receive Date: 20130725
  Receipt Date: 20131213
  Transmission Date: 20140711
  Serious: Yes (Death, Life-Threatening)
  Sender: FDA-Public Use
  Company Number: JP-CELGENEUS-087-50794-13073293

PATIENT
  Age: 63 Year
  Sex: Male
  Weight: 67 kg

DRUGS (21)
  1. VIDAZA [Suspect]
     Indication: MYELODYSPLASTIC SYNDROME
     Dosage: 75 MILLIGRAM/SQ. METER
     Route: 058
     Dates: start: 20121005, end: 20121011
  2. VIDAZA [Suspect]
     Dosage: 75 MILLIGRAM/SQ. METER
     Route: 058
     Dates: start: 20130404, end: 20130410
  3. VIDAZA [Suspect]
     Route: 058
     Dates: start: 20130508, end: 20130514
  4. NASEA [Concomitant]
     Indication: PRODUCT USED FOR UNKNOWN INDICATION
     Route: 065
     Dates: start: 20121005, end: 20121011
  5. NASEA [Concomitant]
     Route: 065
     Dates: start: 20121114, end: 20121120
  6. NASEA-OD [Concomitant]
     Indication: PRODUCT USED FOR UNKNOWN INDICATION
     Route: 065
  7. DECADRON [Concomitant]
     Indication: PRODUCT USED FOR UNKNOWN INDICATION
     Route: 065
     Dates: start: 20121005, end: 20121011
  8. DECADRON [Concomitant]
     Route: 065
     Dates: start: 20121114, end: 20121120
  9. DECADRON [Concomitant]
     Route: 065
     Dates: end: 20130514
  10. PURSENNID [Concomitant]
     Indication: PRODUCT USED FOR UNKNOWN INDICATION
     Route: 065
     Dates: start: 20121006, end: 20121007
  11. MAGLAX [Concomitant]
     Indication: PRODUCT USED FOR UNKNOWN INDICATION
     Route: 065
     Dates: start: 20121007
  12. CRAVIT [Concomitant]
     Indication: PRODUCT USED FOR UNKNOWN INDICATION
     Route: 065
     Dates: start: 20121030, end: 20121208
  13. DIFLUCAN [Concomitant]
     Indication: PRODUCT USED FOR UNKNOWN INDICATION
     Route: 065
     Dates: start: 20121030
  14. NERIPROCT [Concomitant]
     Indication: PRODUCT USED FOR UNKNOWN INDICATION
     Route: 065
     Dates: start: 20121017
  15. MAXIPIME [Concomitant]
     Indication: PRODUCT USED FOR UNKNOWN INDICATION
     Route: 065
     Dates: start: 20121022, end: 20121029
  16. MAXIPIME [Concomitant]
     Route: 065
     Dates: start: 20121109, end: 20121114
  17. MAXIPIME [Concomitant]
     Route: 065
     Dates: start: 20121207, end: 20121215
  18. MAXIPIME [Concomitant]
     Route: 065
     Dates: start: 20130530, end: 20130530
  19. GENINAX [Concomitant]
     Indication: PRODUCT USED FOR UNKNOWN INDICATION
     Route: 065
     Dates: start: 20130307, end: 20130312
  20. ZOSYN [Concomitant]
     Indication: PRODUCT USED FOR UNKNOWN INDICATION
     Route: 065
     Dates: start: 20130531, end: 20130531
  21. KENKETSU VENOGLOBULIN-IH [Concomitant]
     Indication: PRODUCT USED FOR UNKNOWN INDICATION
     Route: 065
     Dates: start: 20130531, end: 20130531

REACTIONS (3)
  - Neutrophil count decreased [Fatal]
  - White blood cell count decreased [Fatal]
  - Pneumonia [Fatal]
